FAERS Safety Report 23622932 (Version 1)
Quarter: 2024Q1

REPORT INFORMATION
  Report Type: Report from Study
  Country: US (occurrence: US)
  Receive Date: 20240312
  Receipt Date: 20240312
  Transmission Date: 20240410
  Serious: Yes (Hospitalization)
  Sender: FDA-Public Use
  Company Number: US-BAXTER-2023BAX026490

PATIENT
  Age: 38 Year
  Sex: Female
  Weight: 76.3 kg

DRUGS (2)
  1. DOXIL [Suspect]
     Active Substance: DOXORUBICIN HYDROCHLORIDE
     Dosage: 60 MG, EVERY 3 WEEKS
     Route: 042
     Dates: start: 20220915, end: 20230609
  2. AVELUMAB [Suspect]
     Active Substance: AVELUMAB
     Dosage: 885 MG, Q2W
     Route: 042
     Dates: start: 20220929, end: 20230622

REACTIONS (1)
  - Fracture [Recovered/Resolved]

NARRATIVE: CASE EVENT DATE: 20230706
